FAERS Safety Report 9088498 (Version 1)
Quarter: 2013Q1

REPORT INFORMATION
  Report Type: Spontaneous
  Country: US (occurrence: US)
  Receive Date: 20130131
  Receipt Date: 20130131
  Transmission Date: 20140127
  Serious: No
  Sender: FDA-Public Use
  Company Number: US-BAYER-2013-009409

PATIENT
  Age: 41 Year
  Sex: Male
  Weight: 77.1 kg

DRUGS (1)
  1. ALEVE CAPLET/TABLET,MIDOL EXTENDED RELIEF CAPLET [Suspect]
     Dosage: 3 DF, UNK
     Route: 048
     Dates: start: 20130111

REACTIONS (1)
  - Incorrect dose administered [None]
